FAERS Safety Report 13190155 (Version 2)
Quarter: 2017Q1

REPORT INFORMATION
  Report Type: Report from Study
  Country: CL (occurrence: CL)
  Receive Date: 20170206
  Receipt Date: 20170223
  Transmission Date: 20170428
  Serious: Yes (Other)
  Sender: FDA-Public Use
  Company Number: CL-EMD SERONO-8139077

PATIENT
  Sex: Female
  Weight: 66 kg

DRUGS (4)
  1. DEGRALER [Concomitant]
     Indication: HYPERSENSITIVITY
  2. SAIZEN [Suspect]
     Active Substance: SOMATROPIN
     Indication: GROWTH RETARDATION
     Dates: start: 20080101, end: 20170108
  3. MONTELUKAST SODIUM. [Concomitant]
     Active Substance: MONTELUKAST SODIUM
     Indication: HYPERSENSITIVITY
  4. DECAPEPTYL                         /00486501/ [Concomitant]
     Active Substance: GONADORELIN
     Indication: PRODUCT USED FOR UNKNOWN INDICATION
     Dosage: 11.25 (UNSPECIFIED UNITS)
     Dates: start: 20100908, end: 20150706

REACTIONS (14)
  - Transaminases abnormal [Unknown]
  - Ear disorder [Unknown]
  - Knee deformity [Unknown]
  - Dyspepsia [Unknown]
  - Epiphysiolysis [Unknown]
  - Gallbladder disorder [Unknown]
  - Blood glucose abnormal [Unknown]
  - Insulin resistance [Unknown]
  - Precocious puberty [Unknown]
  - Therapeutic response decreased [Unknown]
  - Tonsillar disorder [Unknown]
  - Adenoidal disorder [Unknown]
  - Vomiting [Unknown]
  - Body fat disorder [Unknown]
